FAERS Safety Report 16159984 (Version 2)
Quarter: 2019Q2

REPORT INFORMATION
  Report Type: Spontaneous
  Country: RO (occurrence: RO)
  Receive Date: 20190404
  Receipt Date: 20190412
  Transmission Date: 20190711
  Serious: Yes (Other)
  Sender: FDA-Public Use
  Company Number: RO-ELI_LILLY_AND_COMPANY-RO201904000328

PATIENT
  Age: 62 Year
  Sex: Male

DRUGS (5)
  1. ERBITUX [Suspect]
     Active Substance: CETUXIMAB
     Indication: COLORECTAL CANCER METASTATIC
     Dosage: 500 MG, WEEKLY (1/W)
     Route: 042
     Dates: start: 20180611, end: 20181008
  2. FOLINATE CALCIUM [Concomitant]
     Active Substance: LEUCOVORIN CALCIUM
     Indication: COLORECTAL CANCER METASTATIC
     Dosage: 100 MG, WEEKLY (1/W)
     Route: 042
     Dates: start: 20180611, end: 20181118
  3. FLUOROURACIL 5 FU [Concomitant]
     Active Substance: FLUOROURACIL
     Indication: COLORECTAL CANCER METASTATIC
     Dosage: 1 G, WEEKLY (1/W)
     Route: 042
     Dates: start: 20180611, end: 20181118
  4. GRANISETRON [Concomitant]
     Active Substance: GRANISETRON
     Indication: PRODUCT USED FOR UNKNOWN INDICATION
     Dosage: 1 AMPOULE PER WEEK
     Dates: start: 20180611, end: 20181118
  5. OXALIPLATIN. [Concomitant]
     Active Substance: OXALIPLATIN
     Indication: COLORECTAL CANCER METASTATIC
     Dosage: 160 MG, WEEKLY (1/W)
     Route: 042
     Dates: start: 20180611, end: 20181118

REACTIONS (4)
  - Lung disorder [Unknown]
  - Rash [Not Recovered/Not Resolved]
  - Skin lesion [Not Recovered/Not Resolved]
  - Skin haemorrhage [Recovered/Resolved]

NARRATIVE: CASE EVENT DATE: 201810
